FAERS Safety Report 4413001-4 (Version None)
Quarter: 2004Q3

REPORT INFORMATION
  Report Type: 
  Country: None (occurrence: None)
  Receive Date: 20040802
  Receipt Date: 20040416
  Transmission Date: 20050211
  Serious: No
  Sender: FDA-Public Use
  Company Number: US-GLAXOSMITHKLINE-A0507447A

PATIENT
  Age: 1 Month
  Sex: Male
  Weight: 4.5 kg

DRUGS (2)
  1. ZANTAC [Suspect]
     Dosage: .75TSP TWICE PER DAY
     Route: 048
     Dates: start: 20040105, end: 20040310
  2. NO CONCURRENT MEDICATION [Concomitant]

REACTIONS (5)
  - IRRITABILITY [None]
  - MEDICATION ERROR [None]
  - OVERDOSE [None]
  - PHARMACEUTICAL PRODUCT COMPLAINT [None]
  - TREMOR [None]
